FAERS Safety Report 16871897 (Version 1)
Quarter: 2019Q4

REPORT INFORMATION
  Report Type: Report from Study
  Country: IT (occurrence: IT)
  Receive Date: 20191001
  Receipt Date: 20191001
  Transmission Date: 20200122
  Serious: Yes (Hospitalization, Other)
  Sender: FDA-Public Use
  Company Number: IT-BRISTOL-MYERS SQUIBB COMPANY-BMS-2019-091444

PATIENT
  Age: 81 Year
  Sex: Male

DRUGS (3)
  1. TRIATEC [RAMIPRIL] [Concomitant]
     Active Substance: RAMIPRIL
     Indication: PRODUCT USED FOR UNKNOWN INDICATION
     Route: 065
  2. NORVASC [Concomitant]
     Active Substance: AMLODIPINE BESYLATE
     Indication: PRODUCT USED FOR UNKNOWN INDICATION
     Route: 065
  3. APIXABAN [Suspect]
     Active Substance: APIXABAN
     Indication: ATRIAL FIBRILLATION
     Dosage: 5 MILLIGRAM, QD
     Route: 048
     Dates: start: 20170101, end: 20190910

REACTIONS (2)
  - Cerebral haemorrhage [Recovered/Resolved with Sequelae]
  - Confusional state [Recovered/Resolved with Sequelae]

NARRATIVE: CASE EVENT DATE: 20190910
